FAERS Safety Report 18797193 (Version 1)
Quarter: 2021Q1

REPORT INFORMATION
  Report Type: Report from Study
  Country: GB (occurrence: GB)
  Receive Date: 20210127
  Receipt Date: 20210127
  Transmission Date: 20210419
  Serious: Yes (Hospitalization)
  Sender: FDA-Public Use
  Company Number: GB-JNJFOC-20210131373

PATIENT
  Age: 62 Year
  Sex: Male
  Weight: 121 kg

DRUGS (9)
  1. SERETIDE [Concomitant]
     Active Substance: FLUTICASONE PROPIONATE\SALMETEROL XINAFOATE
     Dates: start: 20040102
  2. OMEPRAZOLE. [Concomitant]
     Active Substance: OMEPRAZOLE
     Dates: start: 20080418
  3. VENTOLIN [Concomitant]
     Active Substance: ALBUTEROL SULFATE
     Dates: start: 20020523
  4. ASPIRINE [Concomitant]
     Active Substance: ASPIRIN
     Dates: start: 20080822
  5. HYDROXYCARBAMIDE [Concomitant]
     Active Substance: HYDROXYUREA
     Dates: start: 20130920
  6. CITALOPRAM [Concomitant]
     Active Substance: CITALOPRAM HYDROBROMIDE
     Dates: start: 20131015
  7. TRANDOLAPRIL. [Concomitant]
     Active Substance: TRANDOLAPRIL
     Dates: start: 20080730
  8. PREGABALIN. [Concomitant]
     Active Substance: PREGABALIN
     Dates: start: 20140915
  9. STELARA [Suspect]
     Active Substance: USTEKINUMAB
     Indication: PSORIASIS
     Route: 058
     Dates: start: 20131105

REACTIONS (2)
  - Acute kidney injury [Recovered/Resolved with Sequelae]
  - Infective exacerbation of chronic obstructive airways disease [Recovered/Resolved with Sequelae]

NARRATIVE: CASE EVENT DATE: 20200612
